FAERS Safety Report 20507174 (Version 11)
Quarter: 2025Q4

REPORT INFORMATION
  Report Type: Spontaneous
  Country: US (occurrence: US)
  Receive Date: 20220223
  Receipt Date: 20251023
  Transmission Date: 20260118
  Serious: No
  Sender: PFIZER
  Company Number: US-PFIZER INC-202101653981

PATIENT
  Age: 82 Year
  Sex: Female

DRUGS (5)
  1. IBRANCE [Suspect]
     Active Substance: PALBOCICLIB
     Indication: Breast cancer female
     Dosage: 100 MG DAILY ON DAYS 1-21 EVERY 28 DAY CYCLE
     Dates: start: 20160410
  2. IBRANCE [Suspect]
     Active Substance: PALBOCICLIB
     Dosage: 75 MG DAILY ON DAYS 1-21 THEN 7 DAYS OFF, CYCLIC
     Route: 048
  3. PROLIA [Concomitant]
     Active Substance: DENOSUMAB
     Indication: Breast cancer female
     Dosage: 1 DF EVERY 6 MONTHS, CYCLIC
     Dates: start: 20190321
  4. FASLODEX [Concomitant]
     Active Substance: FULVESTRANT
     Indication: Breast cancer metastatic
     Dosage: 500 MG ON DAY 1 AND 15 OF THE 1ST MONTH
     Route: 030
     Dates: start: 20160410
  5. FASLODEX [Concomitant]
     Active Substance: FULVESTRANT
     Dosage: 500 MG, MONTHLY FOR SUBSEQUENT CYCLES OF IBRANCE
     Route: 030

REACTIONS (4)
  - COVID-19 [Unknown]
  - Weight decreased [Unknown]
  - Hypoacusis [Unknown]
  - Off label use [Unknown]
